FAERS Safety Report 23733291 (Version 2)
Quarter: 2024Q2

REPORT INFORMATION
  Report Type: Spontaneous
  Country: CA (occurrence: CA)
  Receive Date: 20240411
  Receipt Date: 20240425
  Transmission Date: 20240716
  Serious: Yes (Other)
  Sender: FDA-Public Use
  Company Number: CA-TEVA-VS-3179542

PATIENT
  Age: 75 Year
  Sex: Female

DRUGS (4)
  1. CARBOPLATIN [Suspect]
     Active Substance: CARBOPLATIN
     Indication: Ovarian cancer
     Dosage: 5 AUC 4 CYCLES ALONG WITH DOXORUBICIN LIPOSOMAL
     Route: 065
     Dates: start: 20220503, end: 20220901
  2. CARBOPLATIN [Suspect]
     Active Substance: CARBOPLATIN
     Indication: Ovarian cancer
     Dosage: 5 AUC 6 CYCLES ALONG WITH PACLITAXEL
     Route: 065
     Dates: start: 20200817, end: 20210111
  3. PACLITAXEL [Suspect]
     Active Substance: PACLITAXEL
     Indication: Ovarian cancer
     Route: 065
     Dates: start: 20200817, end: 20210111
  4. DOXORUBICIN HYDROCHLORIDE [Suspect]
     Active Substance: DOXORUBICIN HYDROCHLORIDE
     Indication: Ovarian cancer
     Route: 065
     Dates: start: 20220503, end: 20220901

REACTIONS (9)
  - Nausea [Unknown]
  - Vomiting [Unknown]
  - Hyperhidrosis [Unknown]
  - Fatigue [Unknown]
  - Neuropathy peripheral [Unknown]
  - Dyspepsia [Unknown]
  - Diarrhoea [Unknown]
  - Constipation [Unknown]
  - Dysgeusia [Unknown]
